FAERS Safety Report 4705278-2 (Version None)
Quarter: 2005Q2

REPORT INFORMATION
  Report Type: 
  Country: None (occurrence: None)
  Receive Date: 20050629
  Receipt Date: 20050620
  Transmission Date: 20051028
  Serious: Yes (Hospitalization, Other)
  Sender: FDA-Public Use
  Company Number: 05-06-1068

PATIENT
  Age: 30 Year
  Sex: Female
  Weight: 90.7194 kg

DRUGS (3)
  1. CLOZAPINE [Suspect]
     Indication: SCHIZOAFFECTIVE DISORDER
     Dosage: 300-25MG ORAL
     Route: 048
     Dates: start: 20020601, end: 20050330
  2. GEODON [Concomitant]
  3. TOPAMAX [Concomitant]

REACTIONS (7)
  - ACUTE RESPIRATORY DISTRESS SYNDROME [None]
  - ANTIPSYCHOTIC DRUG LEVEL ABOVE THERAPEUTIC [None]
  - DELIRIUM [None]
  - DISCOMFORT [None]
  - DRUG TOXICITY [None]
  - ENCEPHALOPATHY [None]
  - INCORRECT DOSE ADMINISTERED [None]
